FAERS Safety Report 4440586-4 (Version None)
Quarter: 2004Q3

REPORT INFORMATION
  Report Type: 
  Country: None (occurrence: None)
  Receive Date: 20040901
  Receipt Date: 20040901
  Transmission Date: 20050211
  Serious: No
  Sender: FDA-Public Use
  Company Number: None

PATIENT
  Sex: Female
  Weight: 60.782 kg

DRUGS (2)
  1. PAROXETINE 20MG PAR-0877 [Suspect]
     Indication: ANXIETY
     Dosage: 20MG DAILY ORAL
     Route: 048
     Dates: start: 20040130, end: 20040512
  2. PAROXETINE 20MG PAR-0877 [Suspect]
     Indication: DEPRESSION
     Dosage: 20MG DAILY ORAL
     Route: 048
     Dates: start: 20040130, end: 20040512

REACTIONS (2)
  - DRUG INEFFECTIVE [None]
  - PHARMACEUTICAL PRODUCT COMPLAINT [None]
